FAERS Safety Report 8849503 (Version 2)
Quarter: 2013Q1

REPORT INFORMATION
  Report Type: Spontaneous
  Country: GB (occurrence: GB)
  Receive Date: 20121019
  Receipt Date: 20130121
  Transmission Date: 20140127
  Serious: Yes (Other)
  Sender: FDA-Public Use
  Company Number: PHHY2012GB090537

PATIENT
  Age: 62 Year
  Sex: Male
  Weight: 118.83 kg

DRUGS (16)
  1. WARFARIN [Suspect]
     Dosage: 10 MG, AT NIGHT
     Dates: start: 20120901
  2. OMEGA 3 (FISH OIL) [Interacting]
     Indication: ANGINA PECTORIS
     Dates: start: 20120901, end: 20120921
  3. OMEPRAZOLE [Concomitant]
     Dosage: 20 MG, AM
  4. AMLODIPINE [Concomitant]
     Dosage: 10 MG, AM
  5. LISINOPRIL [Concomitant]
     Dosage: 20 MG, BID (6AM AND 5.30PM)
  6. FRUSEMIDE [Concomitant]
     Dosage: 40 MG, BID (6AM AND 5.30PM)
  7. BISOPROLOL [Concomitant]
     Dosage: 2.5 MG, AM
  8. METFORMIN [Concomitant]
     Dosage: 1000 MG, BID
  9. GLICLAZIDE [Concomitant]
     Dosage: 40 MG, BID (6AM 5.30 PM)
  10. VITAMIN B COMPLEX [Concomitant]
  11. ASPIRIN [Concomitant]
     Dosage: 75 MG, PM
  12. FISH OIL [Concomitant]
  13. GLUCOSAMINE [Concomitant]
  14. SIMVASTATIN [Concomitant]
     Dosage: 40 MG, BEDTIME
  15. LANSOPRAZOLE [Concomitant]
     Dosage: 30 MG, AM
  16. ATORVASTATIN [Concomitant]
     Dosage: 20 MG, UNK

REACTIONS (2)
  - International normalised ratio increased [Recovered/Resolved]
  - Drug interaction [Unknown]
